FAERS Safety Report 19243142 (Version 1)
Quarter: 2021Q2

REPORT INFORMATION
  Report Type: Spontaneous
  Country: CN (occurrence: CN)
  Receive Date: 20210511
  Receipt Date: 20210511
  Transmission Date: 20210717
  Serious: Yes (Other)
  Sender: FDA-Public Use
  Company Number: CN-ROCHE-2825792

PATIENT
  Age: 40 Year
  Sex: Male

DRUGS (17)
  1. MABTHERA [Suspect]
     Active Substance: RITUXIMAB
     Indication: FOLLICULAR LYMPHOMA
     Route: 065
     Dates: start: 20200605, end: 20200707
  2. BENDAMUSTINE [Concomitant]
     Active Substance: BENDAMUSTINE
     Dates: start: 202012
  3. LENALIDOMIDE [Concomitant]
     Active Substance: LENALIDOMIDE
     Dates: start: 202102
  4. CISPLATIN. [Concomitant]
     Active Substance: CISPLATIN
     Indication: FOLLICULAR LYMPHOMA
     Dates: start: 20200605
  5. PREDNISONE. [Concomitant]
     Active Substance: PREDNISONE
     Route: 048
     Dates: start: 20200803
  6. VINCRISTINE [Concomitant]
     Active Substance: VINCRISTINE
     Indication: FOLLICULAR LYMPHOMA
     Dates: start: 20200707
  7. VINCRISTINE [Concomitant]
     Active Substance: VINCRISTINE
     Route: 042
     Dates: start: 20200803
  8. PREDNISONE. [Concomitant]
     Active Substance: PREDNISONE
     Indication: FOLLICULAR LYMPHOMA
     Dates: start: 20200707
  9. BENDAMUSTINE [Concomitant]
     Active Substance: BENDAMUSTINE
     Indication: FOLLICULAR LYMPHOMA
     Dates: start: 20200605
  10. CYCLOPHOSPHAMIDE. [Concomitant]
     Active Substance: CYCLOPHOSPHAMIDE
     Indication: FOLLICULAR LYMPHOMA
     Dates: start: 20200707
  11. ZANUBRUTINIB [Concomitant]
     Active Substance: ZANUBRUTINIB
     Indication: FOLLICULAR LYMPHOMA
     Route: 048
     Dates: start: 20200803
  12. ZANUBRUTINIB [Concomitant]
     Active Substance: ZANUBRUTINIB
     Dates: start: 202012
  13. CYCLOPHOSPHAMIDE. [Concomitant]
     Active Substance: CYCLOPHOSPHAMIDE
     Route: 042
     Dates: start: 20200803
  14. DEXAMETHASONE. [Concomitant]
     Active Substance: DEXAMETHASONE
     Indication: FOLLICULAR LYMPHOMA
     Dates: start: 20200605
  15. DOXORUBICIN [Concomitant]
     Active Substance: DOXORUBICIN
     Indication: FOLLICULAR LYMPHOMA
     Dates: start: 20200707
  16. LENALIDOMIDE [Concomitant]
     Active Substance: LENALIDOMIDE
     Indication: FOLLICULAR LYMPHOMA
     Dates: start: 202012
  17. ZANUBRUTINIB [Concomitant]
     Active Substance: ZANUBRUTINIB
     Dates: start: 202102

REACTIONS (5)
  - Pneumonia [Unknown]
  - Hypersensitivity [Unknown]
  - Hepatic function abnormal [Unknown]
  - Haematotoxicity [Unknown]
  - Hypoproteinaemia [Unknown]

NARRATIVE: CASE EVENT DATE: 20200707
